FAERS Safety Report 5129476-1 (Version None)
Quarter: 2006Q4

REPORT INFORMATION
  Report Type: 
  Country: None (occurrence: None)
  Receive Date: 20061012
  Receipt Date: 20060928
  Transmission Date: 20070319
  Serious: Yes (Other)
  Sender: FDA-Public Use
  Company Number: 2006118196

PATIENT
  Age: 68 Year
  Sex: Female
  Weight: 95.2554 kg

DRUGS (4)
  1. SUTENT [Suspect]
     Indication: RENAL CELL CARCINOMA STAGE UNSPECIFIED
     Dosage: 50 MG (50 MG, 1 IN 1 D)
     Dates: start: 20060908
  2. LIPITOR [Concomitant]
  3. THEOPHYLLINE [Concomitant]
  4. RANITIDINE [Concomitant]

REACTIONS (7)
  - ANOREXIA [None]
  - COLD SWEAT [None]
  - DYSGEUSIA [None]
  - EMPHYSEMA [None]
  - NAUSEA [None]
  - PLATELET COUNT INCREASED [None]
  - PYREXIA [None]
